FAERS Safety Report 8003273-1 (Version None)
Quarter: 2011Q4

REPORT INFORMATION
  Report Type: 
  Country: None (occurrence: None)
  Receive Date: 20111222
  Receipt Date: 20111220
  Transmission Date: 20120403
  Serious: Yes (Death)
  Sender: FDA-Public Use
  Company Number: PHHY2011AR110996

PATIENT
  Sex: Male

DRUGS (2)
  1. EXELON [Suspect]
     Indication: PARKINSON'S DISEASE
     Dosage: 9.5 MG\24H
     Route: 062
     Dates: end: 20090401
  2. EXELON [Suspect]
     Route: 062
     Dates: start: 20110401

REACTIONS (2)
  - ANAEMIA [None]
  - CARDIAC DISORDER [None]
